FAERS Safety Report 25626330 (Version 1)
Quarter: 2025Q3

REPORT INFORMATION
  Report Type: Spontaneous
  Country: US (occurrence: US)
  Receive Date: 20250731
  Receipt Date: 20250731
  Transmission Date: 20251021
  Serious: No
  Sender: JOHNSON AND JOHNSON
  Company Number: US-JNJFOC-20250734286

PATIENT

DRUGS (1)
  1. XARELTO [Suspect]
     Active Substance: RIVAROXABAN
     Indication: Product used for unknown indication
     Route: 048

REACTIONS (7)
  - Fatigue [Unknown]
  - Vulvovaginal pruritus [Unknown]
  - Sleep disorder [Unknown]
  - Headache [Unknown]
  - Hair growth abnormal [Unknown]
  - Dark circles under eyes [Unknown]
  - Hypersensitivity [Unknown]
